FAERS Safety Report 17053983 (Version 1)
Quarter: 2019Q4

REPORT INFORMATION
  Report Type: Spontaneous
  Country: US (occurrence: US)
  Receive Date: 20191120
  Receipt Date: 20191120
  Transmission Date: 20200122
  Serious: No
  Sender: FDA-Public Use
  Company Number: US-B.I. PHARMACEUTICALS,INC./RIDGEFIELD-2019-BI-112696

PATIENT
  Sex: Male
  Weight: 58.97 kg

DRUGS (21)
  1. DICYCLOMINE [DICYCLOVERINE] [Concomitant]
     Indication: MUSCLE SPASMS
     Dosage: 20 MG THREE TIMES PER DAY WITH EACH MEAL BY MOUTH
     Route: 048
     Dates: start: 20171102
  2. VITAMIN D [COLECALCIFEROL] [Concomitant]
     Active Substance: CHOLECALCIFEROL
     Indication: PRODUCT USED FOR UNKNOWN INDICATION
     Dosage: 50000 UNITS ONE DAY PER WEEK BY MOUTH
     Route: 048
     Dates: start: 20181126
  3. LOSARTAN POTASSIUM. [Concomitant]
     Active Substance: LOSARTAN POTASSIUM
     Indication: BLOOD PRESSURE MEASUREMENT
     Dosage: 50 MG TABLET BY MOUTH ONCE DAILY
     Route: 048
     Dates: start: 20181126
  4. FENOFIBRATE. [Concomitant]
     Active Substance: FENOFIBRATE
     Indication: PRODUCT USED FOR UNKNOWN INDICATION
     Dosage: 160 MG BY MOUTH ONE TABLET DAILY
     Route: 048
     Dates: start: 20180725
  5. PROPANOLOL [PROPRANOLOL HYDROCHLORIDE] [Concomitant]
     Indication: TREMOR
     Dosage: 20 MG SHORT ACTING ONE TABLET EVERY 4 HOURS AS NEEDED BY MOUTH
     Route: 048
     Dates: start: 20171102
  6. LOPERAMIDE HYDROCHLORIDE. [Concomitant]
     Active Substance: LOPERAMIDE HYDROCHLORIDE
     Indication: PRODUCT USED FOR UNKNOWN INDICATION
     Dosage: 2 MG TABLET WITH EVERY MEAL
     Route: 065
  7. ONDANSETRON [Concomitant]
     Active Substance: ONDANSETRON
     Indication: NAUSEA
     Dosage: 8 MG WHEN NEEDED DISINTEGRATING TABLET BY MOUTH
     Route: 048
  8. DULOXETINE. [Concomitant]
     Active Substance: DULOXETINE
     Indication: NEUROPATHY PERIPHERAL
     Dosage: 60 MG CAPSULE TWICE PER DAY BY MOUTH
     Route: 048
     Dates: start: 20191102
  9. LEVEMIR [Concomitant]
     Active Substance: INSULIN DETEMIR
     Indication: PRODUCT USED FOR UNKNOWN INDICATION
     Dosage: 10 UNITS INJECTION IN THE MORNING AND AT NIGHT
     Route: 065
  10. OMEPRAZOLE. [Concomitant]
     Active Substance: OMEPRAZOLE
     Indication: PRODUCT USED FOR UNKNOWN INDICATION
     Dosage: 20MG CAPSULE BY MOUTH DAILY
     Route: 048
     Dates: start: 20180418
  11. HYDROCODONE/ACETAMINOPHEN [Concomitant]
     Active Substance: ACETAMINOPHEN\HYDROCODONE
     Indication: PRODUCT USED FOR UNKNOWN INDICATION
     Dosage: 7.5/325 MG ONE TABLET FOUR TIMES DAY AS NEEDED FOR PAIN
     Route: 065
  12. FUROSEMIDE. [Concomitant]
     Active Substance: FUROSEMIDE
     Indication: OEDEMA
     Dosage: 20 MG ONCE DAILY BY MOUTH
     Route: 048
     Dates: start: 20180912
  13. NOVOLOG [Concomitant]
     Active Substance: INSULIN ASPART
     Indication: PRODUCT USED FOR UNKNOWN INDICATION
     Dosage: 8 UNITS THREE TIMES DAILY INJECTION
     Route: 065
     Dates: start: 20180725
  14. MOBIC [Suspect]
     Active Substance: MELOXICAM
     Indication: ARTHRALGIA
     Dosage: 15 MG BY MOUTH ONCE DAILY
     Route: 048
     Dates: start: 20180905
  15. CREON [Concomitant]
     Active Substance: PANCRELIPASE AMYLASE\PANCRELIPASE LIPASE\PANCRELIPASE PROTEASE
     Indication: PANCREATITIS
     Dosage: 12000 UNITS THREE TIMES DAILY WITH EACH MEAL BY MOUTH
     Route: 048
     Dates: start: 20180212
  16. LYRICA [Suspect]
     Active Substance: PREGABALIN
     Indication: PRODUCT USED FOR UNKNOWN INDICATION
     Route: 048
  17. TAMSULOSIN [Concomitant]
     Active Substance: TAMSULOSIN
     Indication: PRODUCT USED FOR UNKNOWN INDICATION
     Dosage: 0.4 MG TABLET ONCE DAILY AT BY MOUTH
     Route: 048
     Dates: start: 20180514
  18. ALPHA LIPOIC ACID [Concomitant]
     Active Substance: .ALPHA.-LIPOIC ACID
     Indication: NEUROPATHY PERIPHERAL
     Dosage: 300 MG TWICE PER DAY BY MOUTH
     Route: 048
  19. ATORVASTATIN CALCIUM. [Concomitant]
     Active Substance: ATORVASTATIN CALCIUM
     Indication: BLOOD CHOLESTEROL
     Dosage: 40 MG BY MOUTH 1 TABLET DAILY
     Route: 048
     Dates: start: 20181126
  20. AMITRIPTYLINE [Concomitant]
     Active Substance: AMITRIPTYLINE
     Indication: PRODUCT USED FOR UNKNOWN INDICATION
     Dosage: 10 MG, 2 TABLETS BY MOUTH AT BEDTIME
     Route: 048
     Dates: start: 20181227
  21. INDERAL [Concomitant]
     Active Substance: PROPRANOLOL HYDROCHLORIDE
     Indication: PRODUCT USED FOR UNKNOWN INDICATION
     Dosage: 80 MG TWICE A DAY IN THE MORNING AT NIGHT BY MOUTH
     Route: 048
     Dates: start: 20181126

REACTIONS (2)
  - Liver disorder [Unknown]
  - Peripheral swelling [Unknown]

NARRATIVE: CASE EVENT DATE: 2017
